FAERS Safety Report 7341157-2 (Version None)
Quarter: 2011Q1

REPORT INFORMATION
  Report Type: 
  Country: None (occurrence: None)
  Receive Date: 20110309
  Receipt Date: 20110303
  Transmission Date: 20110831
  Serious: Yes (Hospitalization)
  Sender: FDA-Public Use
  Company Number: B0629346B

PATIENT
  Sex: Male
  Weight: 57 kg

DRUGS (5)
  1. LEXOMIL [Concomitant]
     Indication: ANXIETY
     Dosage: 6MG PER DAY
     Route: 048
     Dates: start: 20100628
  2. LOXEN [Concomitant]
     Dosage: 50MG TWICE PER DAY
     Route: 048
     Dates: start: 20100119
  3. PAZOPANIB [Suspect]
     Indication: SARCOMA
     Dosage: 800MG PER DAY
     Route: 048
     Dates: start: 20100118, end: 20100622
  4. NORSET [Concomitant]
     Indication: DEPRESSION
     Dosage: 15MG TWICE PER DAY
     Route: 048
     Dates: start: 20090922
  5. STILNOX [Concomitant]
     Indication: INSOMNIA
     Dosage: 10MG PER DAY
     Route: 048
     Dates: start: 20090420

REACTIONS (5)
  - DECREASED APPETITE [None]
  - FATIGUE [None]
  - LOSS OF CONSCIOUSNESS [None]
  - MALAISE [None]
  - ASTHENIA [None]
